FAERS Safety Report 8516598-8 (Version None)
Quarter: 2012Q3

REPORT INFORMATION
  Report Type: 
  Country: None (occurrence: None)
  Receive Date: 20120718
  Receipt Date: 20120713
  Transmission Date: 20120928
  Serious: No
  Sender: FDA-Public Use
  Company Number: US-BAYER-2012-071007

PATIENT
  Age: 67 Year
  Sex: Male

DRUGS (6)
  1. BACLOFEN [Concomitant]
  2. MULTI-VITAMIN [Concomitant]
  3. VITAMIN D [Concomitant]
  4. CARBAMAZEPINE [Concomitant]
  5. BETASERON [Suspect]
     Indication: PRODUCT USED FOR UNKNOWN INDICATION
     Dosage: 0.25 MG, QOD
     Route: 058
     Dates: start: 19970101
  6. SIMVASTATIN [Concomitant]

REACTIONS (1)
  - DIARRHOEA [None]
